FAERS Safety Report 22032107 (Version 1)
Quarter: 2023Q1

REPORT INFORMATION
  Report Type: Report from Study
  Country: US (occurrence: US)
  Receive Date: 20230224
  Receipt Date: 20230224
  Transmission Date: 20230417
  Serious: Yes (Other)
  Sender: FDA-Public Use
  Company Number: US-BEH-2023155565

PATIENT
  Age: 70 Year
  Sex: Male
  Weight: 113.38 kg

DRUGS (1)
  1. HIZENTRA [Suspect]
     Active Substance: HUMAN IMMUNOGLOBULIN G
     Indication: Chronic inflammatory demyelinating polyradiculoneuropathy
     Dosage: 22 GRAM, QW
     Route: 058
     Dates: start: 20220705, end: 20230130

REACTIONS (4)
  - Malaise [Recovering/Resolving]
  - Ocular hyperaemia [Recovering/Resolving]
  - Sluggishness [Recovering/Resolving]
  - Pain [Recovering/Resolving]

NARRATIVE: CASE EVENT DATE: 20220101
